FAERS Safety Report 7834934-2 (Version None)
Quarter: 2011Q4

REPORT INFORMATION
  Report Type: 
  Country: None (occurrence: None)
  Receive Date: 20111024
  Receipt Date: 20111014
  Transmission Date: 20120403
  Serious: Yes (Other)
  Sender: FDA-Public Use
  Company Number: BR-SANOFI-AVENTIS-2011SA068011

PATIENT
  Sex: Female

DRUGS (7)
  1. LANTUS [Suspect]
     Route: 058
     Dates: start: 20110805
  2. CLIKSTAR [Suspect]
     Dates: start: 20110805
  3. SOLOSTAR [Suspect]
  4. ATORVASTATIN [Concomitant]
     Route: 048
     Dates: start: 20110101
  5. LANTUS [Suspect]
     Route: 058
     Dates: start: 20110101
  6. APIDRA [Suspect]
     Dosage: 10 IU  BEFORE BREAKFAST10 IU BEFORE LUNCH5 IU BEFORE DINNER
     Route: 058
     Dates: start: 20110101
  7. APIDRA [Suspect]
     Dosage: 10 IU  BEFORE BREAKFAST10 IU BEFORE LUNCH5 IU BEFORE DINNER
     Route: 058
     Dates: start: 20110805

REACTIONS (9)
  - FEELING COLD [None]
  - FATIGUE [None]
  - ASTHENIA [None]
  - HYPERGLYCAEMIA [None]
  - HYPOGLYCAEMIA [None]
  - BLOOD TEST [None]
  - DEHYDRATION [None]
  - HYPERHIDROSIS [None]
  - LOSS OF CONSCIOUSNESS [None]
